FAERS Safety Report 9202297 (Version 2)
Quarter: 2013Q2

REPORT INFORMATION
  Report Type: Spontaneous
  Country: NL (occurrence: NL)
  Receive Date: 20130401
  Receipt Date: 20130409
  Transmission Date: 20140414
  Serious: Yes (Death, Hospitalization, Other)
  Sender: FDA-Public Use
  Company Number: PHHY2013NL031232

PATIENT
  Age: 74 Year
  Sex: Female

DRUGS (6)
  1. DOXORUBICIN [Suspect]
     Indication: DIFFUSE LARGE B-CELL LYMPHOMA
  2. VINCRISTINE [Suspect]
     Indication: DIFFUSE LARGE B-CELL LYMPHOMA
  3. PREDNISOLONE [Suspect]
     Indication: DIFFUSE LARGE B-CELL LYMPHOMA
  4. RITUXIMAB [Suspect]
     Indication: DIFFUSE LARGE B-CELL LYMPHOMA
  5. CYCLOPHOSPHAMIDE [Suspect]
     Indication: DIFFUSE LARGE B-CELL LYMPHOMA
     Dosage: UNK
  6. GRANULOCYTE COLONY STIMULATING FACTOR [Concomitant]

REACTIONS (11)
  - Progressive multifocal leukoencephalopathy [Fatal]
  - Motor dysfunction [Fatal]
  - Autonomic nervous system imbalance [Fatal]
  - Cognitive disorder [Fatal]
  - Hemiparesis [Fatal]
  - Ataxia [Fatal]
  - VIth nerve disorder [Fatal]
  - Demyelination [Fatal]
  - JC virus infection [Unknown]
  - Weight decreased [Unknown]
  - Fatigue [Unknown]
